FAERS Safety Report 22362809 (Version 1)
Quarter: 2023Q2

REPORT INFORMATION
  Report Type: Spontaneous
  Country: BH (occurrence: BH)
  Receive Date: 20230524
  Receipt Date: 20230524
  Transmission Date: 20230721
  Serious: Yes (Hospitalization, Other)
  Sender: FDA-Public Use
  Company Number: BH-STRIDES ARCOLAB LIMITED-2023SP007459

PATIENT
  Sex: Male

DRUGS (3)
  1. METHOTREXATE [Suspect]
     Active Substance: METHOTREXATE
     Indication: Product used for unknown indication
     Dosage: UNK (MOTHER RECEIVED)
     Route: 064
  2. PREDNISOLONE [Suspect]
     Active Substance: PREDNISOLONE
     Indication: Product used for unknown indication
     Dosage: UNK (MOTHER RECEIVED)
     Route: 064
  3. GOLIMUMAB [Suspect]
     Active Substance: GOLIMUMAB
     Indication: Product used for unknown indication
     Dosage: UNK (MOTHER RECEIVED)
     Route: 064

REACTIONS (7)
  - Premature baby [Unknown]
  - Low birth weight baby [Recovered/Resolved]
  - Neonatal respiratory distress syndrome [Unknown]
  - Feeding intolerance [Recovered/Resolved]
  - Lactic acidosis [None]
  - Vitamin B1 deficiency [Recovered/Resolved]
  - Foetal exposure during pregnancy [Unknown]
